FAERS Safety Report 16461538 (Version 1)
Quarter: 2019Q2

REPORT INFORMATION
  Report Type: Report from Study
  Country: US (occurrence: US)
  Receive Date: 20190621
  Receipt Date: 20190621
  Transmission Date: 20190711
  Serious: Yes (Other)
  Sender: FDA-Public Use
  Company Number: US-ROCHE-2337775

PATIENT
  Age: 54 Year
  Sex: Female
  Weight: 62.65 kg

DRUGS (17)
  1. DOCETAXEL. [Concomitant]
     Active Substance: DOCETAXEL
  2. ANASTROZOLE. [Concomitant]
     Active Substance: ANASTROZOLE
     Route: 065
  3. CARBOPLATIN. [Concomitant]
     Active Substance: CARBOPLATIN
  4. TYLENOL [Concomitant]
     Active Substance: ACETAMINOPHEN
     Route: 065
  5. PERJETA [Suspect]
     Active Substance: PERTUZUMAB
     Indication: BREAST CANCER FEMALE
     Route: 065
     Dates: start: 20180815
  6. TAXOTERE [Suspect]
     Active Substance: DOCETAXEL
     Indication: PRODUCT USED FOR UNKNOWN INDICATION
     Route: 065
  7. POTASSIUM CHLORIDE. [Concomitant]
     Active Substance: POTASSIUM CHLORIDE
     Route: 065
  8. FLUZONE [INFLUENZA VACCINE] [Concomitant]
  9. EMLA [LIDOCAINE;PRILOCAINE] [Concomitant]
  10. DEXA [DEXAMETHASONE] [Concomitant]
  11. FLONASE [Concomitant]
     Active Substance: FLUTICASONE PROPIONATE
  12. HERCEPTIN [Suspect]
     Active Substance: TRASTUZUMAB
     Indication: BREAST CANCER FEMALE
     Route: 065
     Dates: start: 20180815
  13. MAGNESIUM SULPHATE [MAGNESIUM SULFATE] [Concomitant]
     Route: 065
  14. IMODIUM [Concomitant]
     Active Substance: LOPERAMIDE HYDROCHLORIDE
  15. METOPROLOL TARTRATE. [Concomitant]
     Active Substance: METOPROLOL TARTRATE
     Route: 065
  16. NICODERM CQ [Concomitant]
     Active Substance: NICOTINE
     Dosage: 1PATCH
     Route: 065
  17. PEPCID [Concomitant]
     Active Substance: FAMOTIDINE
     Route: 065

REACTIONS (24)
  - Hepatic cyst [Unknown]
  - Diverticulum gastric [Unknown]
  - Insomnia [Unknown]
  - Thrombocytopenia [Recovered/Resolved]
  - Anaemia [Unknown]
  - Blood calcium decreased [Unknown]
  - Rash [Recovered/Resolved]
  - Nausea [Recovered/Resolved]
  - Blood potassium decreased [Unknown]
  - Vomiting [Recovered/Resolved]
  - Hepatic steatosis [Unknown]
  - Mood altered [Unknown]
  - Blood magnesium decreased [Unknown]
  - Gastrooesophageal reflux disease [Unknown]
  - Escherichia bacteraemia [Unknown]
  - Cough [Unknown]
  - Skin reaction [Unknown]
  - Angioedema [Unknown]
  - Abdominal pain [Unknown]
  - Decreased appetite [Unknown]
  - Asthenia [Unknown]
  - Fatigue [Unknown]
  - Diarrhoea [Unknown]
  - Pyrexia [Unknown]

NARRATIVE: CASE EVENT DATE: 20180820
